FAERS Safety Report 13325369 (Version 2)
Quarter: 2017Q3

REPORT INFORMATION
  Report Type: Spontaneous
  Country: GB (occurrence: GB)
  Receive Date: 20170310
  Receipt Date: 20170818
  Transmission Date: 20171127
  Serious: Yes (Other)
  Sender: FDA-Public Use
  Company Number: GB-ALLERGAN-1709143US

PATIENT
  Age: 22 Year
  Sex: Female
  Weight: 46 kg

DRUGS (4)
  1. ACETYL TYROSINE [Concomitant]
     Indication: PRODUCT USED FOR UNKNOWN INDICATION
     Dosage: UNK
     Route: 065
  2. ST JOHN^S WORT EXTRACT [Concomitant]
     Indication: PRODUCT USED FOR UNKNOWN INDICATION
     Dosage: UNK
     Route: 065
  3. INOSITOL [Concomitant]
     Active Substance: INOSITOL
     Indication: PRODUCT USED FOR UNKNOWN INDICATION
     Dosage: UNK
     Route: 065
  4. CITALOPRAM HYDROBROMIDE - BP [Suspect]
     Active Substance: CITALOPRAM HYDROBROMIDE
     Indication: SOCIAL ANXIETY DISORDER
     Dosage: 30 MG, QD
     Route: 048
     Dates: start: 201503, end: 201603

REACTIONS (6)
  - Hypoaesthesia [Recovering/Resolving]
  - Blunted affect [Not Recovered/Not Resolved]
  - Loss of libido [Recovered/Resolved]
  - Fatigue [Not Recovered/Not Resolved]
  - Disturbance in sexual arousal [Recovered/Resolved]
  - Off label use [Unknown]

NARRATIVE: CASE EVENT DATE: 201604
